FAERS Safety Report 7522127-8 (Version None)
Quarter: 2011Q2

REPORT INFORMATION
  Report Type: 
  Country: None (occurrence: None)
  Receive Date: 20110603
  Receipt Date: 20110524
  Transmission Date: 20111010
  Serious: Yes (Hospitalization)
  Sender: FDA-Public Use
  Company Number: US-JNJFOC-20110510980

PATIENT
  Age: 62 Year
  Sex: Male

DRUGS (10)
  1. INVEGA SUSTENNA [Suspect]
     Indication: SCHIZOPHRENIA
     Route: 030
     Dates: start: 20110501
  2. PANTOPRAZOLE [Concomitant]
     Route: 048
  3. LORAZEPAM [Concomitant]
     Route: 048
  4. HALDOL [Suspect]
     Indication: SCHIZOPHRENIA
     Route: 030
  5. PERPHENAZINE [Concomitant]
     Route: 065
  6. GLIMEPIRIDE [Concomitant]
     Indication: DIABETES MELLITUS
     Route: 048
  7. METFORMIN HCL [Concomitant]
     Indication: DIABETES MELLITUS
     Route: 048
  8. SIMVASTATIN [Concomitant]
     Route: 048
  9. HALDOL [Suspect]
     Route: 048
  10. INSULIN [Concomitant]
     Indication: DIABETES MELLITUS
     Route: 058

REACTIONS (1)
  - SCHIZOPHRENIA [None]
